FAERS Safety Report 23851830 (Version 1)
Quarter: 2024Q2

REPORT INFORMATION
  Report Type: Spontaneous
  Country: US (occurrence: US)
  Receive Date: 20240514
  Receipt Date: 20240514
  Transmission Date: 20240716
  Serious: No
  Sender: FDA-Public Use
  Company Number: US-SANDOZ-SDZ2024US047745

PATIENT
  Sex: Female

DRUGS (1)
  1. ALBUTEROL SULFATE [Suspect]
     Active Substance: ALBUTEROL SULFATE
     Indication: Product used for unknown indication
     Dosage: DOSE=90MCG/DOS 200DO
     Route: 065
     Dates: start: 20240429

REACTIONS (3)
  - Product dose omission issue [Unknown]
  - Device dispensing error [Unknown]
  - Device delivery system issue [Unknown]
